FAERS Safety Report 12586866 (Version 1)
Quarter: 2016Q3

REPORT INFORMATION
  Report Type: Spontaneous
  Country: US (occurrence: None)
  Receive Date: 20160722
  Receipt Date: 20160722
  Transmission Date: 20161109
  Serious: No
  Sender: FDA-Public Use
  Company Number: None

PATIENT
  Age: 74 Year
  Sex: Female

DRUGS (1)
  1. IBRANCE [Suspect]
     Active Substance: PALBOCICLIB
     Indication: BREAST CANCER FEMALE

REACTIONS (6)
  - Hypoaesthesia [None]
  - Atrial fibrillation [None]
  - Paraesthesia [None]
  - Haemorrhage [None]
  - Dyspepsia [None]
  - Gastrointestinal pain [None]

NARRATIVE: CASE EVENT DATE: 20160721
